FAERS Safety Report 5290665-7 (Version None)
Quarter: 2007Q2

REPORT INFORMATION
  Report Type: 
  Country: None (occurrence: None)
  Receive Date: 20070402
  Receipt Date: 20070318
  Transmission Date: 20071010
  Serious: Yes (Other)
  Sender: FDA-Public Use
  Company Number: 154066ISR

PATIENT
  Age: 71 Year
  Sex: Male

DRUGS (1)
  1. COPAXONE [Suspect]
     Dosage: 20 MG (20 MG, 1 IN 1 D) SUBCUTANEOUS
     Route: 058
     Dates: start: 20040301

REACTIONS (1)
  - AUTOIMMUNE HEPATITIS [None]
